FAERS Safety Report 9494477 (Version 4)
Quarter: 2013Q4

REPORT INFORMATION
  Report Type: Spontaneous
  Country: US (occurrence: US)
  Receive Date: 20130903
  Receipt Date: 20131030
  Transmission Date: 20140711
  Serious: Yes (Hospitalization, Other)
  Sender: FDA-Public Use
  Company Number: US-ASTELLAS-2013US009104

PATIENT
  Age: 66 Year
  Sex: Male

DRUGS (4)
  1. XTANDI [Suspect]
     Indication: PROSTATE CANCER METASTATIC
     Dosage: 160 MG, UID/QD
     Route: 048
     Dates: start: 20130624, end: 20130712
  2. PROVENGE [Suspect]
     Indication: PROSTATE CANCER METASTATIC
     Dosage: 250 ML, TOTAL DOSE
     Route: 042
     Dates: start: 20130426, end: 20130426
  3. PROVENGE [Suspect]
     Dosage: 250 ML, TOTAL DOSE
     Route: 042
     Dates: start: 20130510, end: 20130510
  4. PROVENGE [Suspect]
     Dosage: 250 ML, TOTAL DOSE
     Route: 042
     Dates: start: 20130524, end: 20130524

REACTIONS (11)
  - Acute myocardial infarction [Unknown]
  - Gait disturbance [Recovered/Resolved]
  - Thrombosis in device [Unknown]
  - Headache [Recovered/Resolved]
  - Fatigue [Unknown]
  - Superior vena cava syndrome [Unknown]
  - Musculoskeletal stiffness [Unknown]
  - Toothache [Unknown]
  - Hyperhidrosis [Recovered/Resolved]
  - Flushing [Recovered/Resolved]
  - Anxiety [Unknown]
